FAERS Safety Report 7797059-0 (Version None)
Quarter: 2011Q4

REPORT INFORMATION
  Report Type: 
  Country: None (occurrence: None)
  Receive Date: 20111005
  Receipt Date: 20110926
  Transmission Date: 20120403
  Serious: Yes (Death, Life-Threatening, Other)
  Sender: FDA-Public Use
  Company Number: JP-CELGENEUS-087-21660-11091402

PATIENT
  Age: 50 Year
  Sex: Female
  Weight: 54 kg

DRUGS (13)
  1. ABRAXANE [Suspect]
     Indication: BREAST CANCER METASTATIC
     Dosage: 150 MILLIGRAM
     Route: 041
     Dates: start: 20110822, end: 20110822
  2. FENTANYL [Concomitant]
     Indication: CANCER PAIN
     Route: 062
     Dates: start: 20110831, end: 20110902
  3. RED BLOOD CELLS [Concomitant]
     Route: 041
     Dates: start: 20110623
  4. PROCHLORPERAZINE [Concomitant]
     Route: 065
  5. RABEPRAZOLE SODIUM [Concomitant]
     Indication: PROPHYLAXIS
     Dosage: 10 MILLIGRAM
     Route: 048
     Dates: start: 20110630, end: 20110829
  6. CELECOXIB [Concomitant]
     Indication: CANCER PAIN
     Dosage: 200 MILLIGRAM
     Route: 048
     Dates: start: 20110707, end: 20110829
  7. MEDROXYPROGESTERONE ACETATE [Concomitant]
     Indication: BREAST CANCER METASTATIC
     Dosage: 600 MILLIGRAM
     Route: 048
     Dates: start: 20091020, end: 20110829
  8. TRAMADOL HYDROCHLORIDE [Concomitant]
     Indication: CANCER PAIN
     Dosage: 25 MILLIGRAM
     Route: 048
     Dates: start: 20110824, end: 20110830
  9. HEPARIN SODIUM [Concomitant]
     Dosage: 1000 UNITS
     Route: 065
     Dates: start: 20110828
  10. FUNGUARD [Concomitant]
     Indication: FUNGAL INFECTION
     Dosage: 150 MILLIGRAM
     Route: 065
     Dates: start: 20110901
  11. OXYGEN [Concomitant]
     Dosage: 1 LITERS
     Route: 055
  12. NEUROTROPIN [Concomitant]
     Route: 065
  13. FERROUS CITRATE [Concomitant]
     Route: 065

REACTIONS (3)
  - NEUTROPHIL COUNT DECREASED [None]
  - PLATELET COUNT DECREASED [None]
  - SEPSIS [None]
